FAERS Safety Report 9013795 (Version 1)
Quarter: 2013Q1

REPORT INFORMATION
  Report Type: Spontaneous
  Country: BR (occurrence: BR)
  Receive Date: 20130115
  Receipt Date: 20130115
  Transmission Date: 20140127
  Serious: Yes (Other)
  Sender: FDA-Public Use
  Company Number: PHHY2013BR002843

PATIENT
  Sex: Male
  Weight: 104 kg

DRUGS (8)
  1. SANDOSTATIN LAR [Suspect]
     Indication: ACROMEGALY
     Dosage: 20 MG, EVERY 28 AND 30 DAYS
     Dates: start: 2009
  2. SANDOSTATIN LAR [Suspect]
     Dosage: 30 MG, EVERY 28 AND 30 DAYS
  3. CABERGOLINE [Concomitant]
     Dosage: 1 DF, DAILY
     Dates: start: 2010
  4. ENALAPRIL [Concomitant]
     Indication: BLOOD PRESSURE
     Dosage: 1 DF, DAILY
     Dates: start: 2010
  5. HYDROCHLOROTHIAZIDE [Concomitant]
     Indication: BLOOD PRESSURE
     Dosage: 1 DF, DAILY
     Dates: start: 2010
  6. NIFEDIPINE [Concomitant]
     Indication: DIABETES MELLITUS
     Dosage: 1 DF, DAILY
     Dates: start: 2010
  7. SINVASTATINA [Concomitant]
     Indication: DIABETES MELLITUS
     Dosage: 1 DF, DAILY
     Dates: start: 2010
  8. PREDNISON [Concomitant]
     Indication: BLOOD PRESSURE
     Dosage: 1 DF, DAILY
     Dates: start: 2010

REACTIONS (3)
  - Brain neoplasm [Unknown]
  - Weight increased [Recovered/Resolved]
  - Blood pressure increased [Recovered/Resolved]
